FAERS Safety Report 6533794-X (Version None)
Quarter: 2010Q1

REPORT INFORMATION
  Report Type: 
  Country: None (occurrence: None)
  Receive Date: 20100111
  Receipt Date: 20090128
  Transmission Date: 20100710
  Serious: No
  Sender: FDA-Public Use
  Company Number: US-ABBOTT-09P-163-0500440-00

PATIENT
  Sex: Male
  Weight: 72.186 kg

DRUGS (1)
  1. VICODIN [Suspect]
     Indication: PAIN
     Dosage: ONE EVERY FOUR HOURS PRN
     Dates: start: 20081229, end: 20090125

REACTIONS (3)
  - ANXIETY [None]
  - PANIC REACTION [None]
  - RHINORRHOEA [None]
